FAERS Safety Report 5968161-0 (Version None)
Quarter: 2008Q4

REPORT INFORMATION
  Report Type: 
  Country: None (occurrence: None)
  Receive Date: 20081122
  Receipt Date: 20081122
  Transmission Date: 20090506
  Serious: Yes (Hospitalization)
  Sender: FDA-Public Use
  Company Number: None

PATIENT
  Sex: Female
  Weight: 63.5 kg

DRUGS (1)
  1. TEMOZOLOMIDE [Suspect]
     Dosage: 2500 MG

REACTIONS (4)
  - ASTHMA [None]
  - HAEMOGLOBIN DECREASED [None]
  - PNEUMONIA ASPIRATION [None]
  - PNEUMONITIS [None]
